FAERS Safety Report 19412548 (Version 2)
Quarter: 2021Q2

REPORT INFORMATION
  Report Type: Spontaneous
  Country: FR (occurrence: FR)
  Receive Date: 20210614
  Receipt Date: 20210627
  Transmission Date: 20210717
  Serious: Yes (Other)
  Sender: FDA-Public Use
  Company Number: NVSC2021FR129458

PATIENT
  Age: 76 Year
  Sex: Female
  Weight: 88 kg

DRUGS (7)
  1. SOLUPRED [Concomitant]
     Dosage: 7.5 UNK, TOTAL DAILY DOSE
     Route: 065
     Dates: start: 20161007, end: 20161213
  2. CELLCEPT [Concomitant]
     Active Substance: MYCOPHENOLATE MOFETIL\MYCOPHENOLATE MOFETIL HYDROCHLORIDE
     Indication: IMMUNOSUPPRESSION
     Dosage: 1000, UNK, TOTAL DAILY DOSE
     Route: 065
     Dates: start: 20160910
  3. TACROLIMUS. [Suspect]
     Active Substance: TACROLIMUS
     Indication: IMMUNOSUPPRESSION
     Dosage: 4 MG,QD
     Route: 048
     Dates: start: 20160605
  4. SOLUPRED [Concomitant]
     Dosage: 10 UNK, TOTAL DAILY DOSE
     Route: 065
     Dates: start: 20160608, end: 20161006
  5. CELLCEPT [Concomitant]
     Active Substance: MYCOPHENOLATE MOFETIL\MYCOPHENOLATE MOFETIL HYDROCHLORIDE
     Dosage: 1500 UNK, TOTAL DAILY DOSE
     Route: 065
     Dates: start: 20160608, end: 20160922
  6. SOLUPRED [Concomitant]
     Indication: IMMUNOSUPPRESSION
     Dosage: 7.5 UNK, TOTAL DAILY DOSE
     Route: 065
     Dates: start: 20170113
  7. SOLUPRED [Concomitant]
     Dosage: 2.5 UNK, TOTAL DAILY DOSE
     Route: 065
     Dates: start: 20161214, end: 20170112

REACTIONS (2)
  - Bowen^s disease [Not Recovered/Not Resolved]
  - Drug interaction [Unknown]

NARRATIVE: CASE EVENT DATE: 20201127
